FAERS Safety Report 18855152 (Version 1)
Quarter: 2021Q1

REPORT INFORMATION
  Report Type: Spontaneous
  Country: CA (occurrence: CA)
  Receive Date: 20210205
  Receipt Date: 20210205
  Transmission Date: 20210420
  Serious: Yes (Disabling, Other)
  Sender: FDA-Public Use
  Company Number: CA-GLAXOSMITHKLINE-CACH2021003554

PATIENT
  Sex: Male

DRUGS (3)
  1. ALEVE [Suspect]
     Active Substance: NAPROXEN SODIUM
     Indication: EPICONDYLITIS
     Dosage: UNK
  2. VOLTAREN [Suspect]
     Active Substance: DICLOFENAC SODIUM
     Indication: EPICONDYLITIS
     Dosage: UNK
  3. METHYL SALICYLATE [Suspect]
     Active Substance: METHYL SALICYLATE
     Indication: EPICONDYLITIS
     Dosage: UNK

REACTIONS (9)
  - Intentional product misuse [Unknown]
  - Disorientation [Unknown]
  - Loss of personal independence in daily activities [Unknown]
  - Prostate cancer [Unknown]
  - Burning sensation [Unknown]
  - Gastrointestinal sounds abnormal [Unknown]
  - Mental disorder [Unknown]
  - Weight decreased [Unknown]
  - Erectile dysfunction [Unknown]
